FAERS Safety Report 13199504 (Version 1)
Quarter: 2017Q1

REPORT INFORMATION
  Report Type: Spontaneous
  Country: US (occurrence: US)
  Receive Date: 20170208
  Receipt Date: 20170208
  Transmission Date: 20170428
  Serious: Yes (Other)
  Sender: FDA-Public Use
  Company Number: US-BRISTOL-MYERS SQUIBB COMPANY-BMS-2017-007462

PATIENT
  Sex: Female
  Weight: 86.62 kg

DRUGS (2)
  1. GLUCOVANCE [Suspect]
     Active Substance: GLYBURIDE\METFORMIN HYDROCHLORIDE
     Indication: PRODUCT USED FOR UNKNOWN INDICATION
     Dosage: 2 DF, BID
     Route: 065
     Dates: start: 1991
  2. INSULIN [Suspect]
     Active Substance: INSULIN NOS
     Indication: BLOOD GLUCOSE INCREASED
     Route: 065

REACTIONS (11)
  - Teeth brittle [Unknown]
  - Breast cancer [Unknown]
  - Hernia repair [Unknown]
  - Radiation skin injury [Unknown]
  - Blood glucose abnormal [Unknown]
  - Anaphylactic reaction [Unknown]
  - Gastrooesophageal reflux disease [Unknown]
  - Product taste abnormal [Unknown]
  - Pain in extremity [Unknown]
  - Eye pruritus [Unknown]
  - Middle insomnia [Unknown]

NARRATIVE: CASE EVENT DATE: 2010
